FAERS Safety Report 22998603 (Version 2)
Quarter: 2024Q4

REPORT INFORMATION
  Report Type: Spontaneous
  Country: US (occurrence: US)
  Receive Date: 20230928
  Receipt Date: 20241004
  Transmission Date: 20250114
  Serious: Yes (Other)
  Sender: ENDO
  Company Number: ENDB23-03188

PATIENT
  Sex: Male

DRUGS (1)
  1. THEO-24 [Suspect]
     Active Substance: THEOPHYLLINE ANHYDROUS
     Indication: Product used for unknown indication
     Dosage: 600 MG, DAILY
     Route: 065

REACTIONS (1)
  - Toxicity to various agents [Recovered/Resolved]
